FAERS Safety Report 8971978 (Version 3)
Quarter: 2013Q3

REPORT INFORMATION
  Report Type: Spontaneous
  Country: JP (occurrence: JP)
  Receive Date: 20121218
  Receipt Date: 20130807
  Transmission Date: 20140515
  Serious: Yes (Life-Threatening, Hospitalization, Other)
  Sender: FDA-Public Use
  Company Number: JP-PFIZER INC-2012312080

PATIENT
  Age: 68 Year
  Sex: Male

DRUGS (2)
  1. LYRICA [Suspect]
     Indication: BACK PAIN
     Dosage: 150 MG/DAY
     Route: 048
     Dates: start: 20121010, end: 20121126
  2. NORSPAN [Concomitant]
     Dosage: 20 MG/DAY

REACTIONS (6)
  - Interstitial lung disease [Recovered/Resolved]
  - Emphysema [Unknown]
  - Non-cardiogenic pulmonary oedema [Recovering/Resolving]
  - Blood osmolarity decreased [Unknown]
  - Renal failure [Unknown]
  - Pleural effusion [Recovering/Resolving]
